FAERS Safety Report 5718569-3 (Version None)
Quarter: 2008Q2

REPORT INFORMATION
  Report Type: 
  Country: None (occurrence: None)
  Receive Date: 20080425
  Receipt Date: 20080415
  Transmission Date: 20081010
  Serious: Yes (Disabling, Congenital Anomaly)
  Sender: FDA-Public Use
  Company Number: US-WYE-H01342607

PATIENT
  Sex: Male

DRUGS (1)
  1. EFFEXOR XR [Suspect]
     Indication: DEPRESSION
     Route: 064
     Dates: start: 20040801

REACTIONS (17)
  - ABDOMINAL PAIN [None]
  - AUTISM [None]
  - BLOOD BILIRUBIN INCREASED [None]
  - DRUG EXPOSURE DURING PREGNANCY [None]
  - EAR INFECTION [None]
  - FEEDING DISORDER NEONATAL [None]
  - HERNIA [None]
  - JAUNDICE NEONATAL [None]
  - MUSCULOSKELETAL STIFFNESS [None]
  - NEONATAL DISORDER [None]
  - PYREXIA [None]
  - RESTLESSNESS [None]
  - SLEEP DISORDER [None]
  - SLEEP TERROR [None]
  - SPEECH DISORDER [None]
  - UNDERWEIGHT [None]
  - UNEVALUABLE EVENT [None]
